FAERS Safety Report 5241672-1 (Version None)
Quarter: 2007Q1

REPORT INFORMATION
  Report Type: 
  Country: None (occurrence: None)
  Receive Date: 20070220
  Receipt Date: 20070206
  Transmission Date: 20070707
  Serious: Yes (Hospitalization)
  Sender: FDA-Public Use
  Company Number: ES-ELI_LILLY_AND_COMPANY-ES200702001745

PATIENT
  Age: 69 Year
  Sex: Female

DRUGS (9)
  1. FORTEO [Suspect]
     Indication: OSTEOPOROSIS
     Dosage: 20 UG, DAILY (1/D)
     Route: 058
     Dates: start: 20061205, end: 20070115
  2. OXYGEN [Concomitant]
  3. ATROVENT [Concomitant]
  4. SALBUTAMOL [Concomitant]
  5. NYSTATIN [Concomitant]
  6. RENITEC [Concomitant]
  7. FORTINOL [Concomitant]
  8. OMEPRAZOLE [Concomitant]
  9. SEGURIL [Concomitant]

REACTIONS (4)
  - ASTHMA [None]
  - BRONCHITIS [None]
  - FALL [None]
  - PYREXIA [None]
